FAERS Safety Report 22048790 (Version 2)
Quarter: 2023Q2

REPORT INFORMATION
  Report Type: Spontaneous
  Country: US (occurrence: None)
  Receive Date: 20230301
  Receipt Date: 20230412
  Transmission Date: 20230722
  Serious: Yes (Other)
  Sender: FDA-Public Use
  Company Number: 2023A044517

PATIENT
  Sex: Female
  Weight: 76.6 kg

DRUGS (4)
  1. SAPHNELO [Suspect]
     Active Substance: ANIFROLUMAB-FNIA
     Indication: Systemic lupus erythematosus
     Dosage: UNKNOWN DOSE EVERY FOUR WEEKS
     Route: 042
     Dates: start: 20220804
  2. MELOXICAM [Concomitant]
     Active Substance: MELOXICAM
  3. PROZAC [Concomitant]
     Active Substance: FLUOXETINE HYDROCHLORIDE
  4. ZOFRAN [Concomitant]
     Active Substance: ONDANSETRON HYDROCHLORIDE

REACTIONS (3)
  - Fluid retention [Unknown]
  - Swelling [Unknown]
  - Weight increased [Unknown]
